FAERS Safety Report 6076595-1 (Version None)
Quarter: 2009Q1

REPORT INFORMATION
  Report Type: 
  Country: None (occurrence: None)
  Receive Date: 20090212
  Receipt Date: 20090212
  Transmission Date: 20090719
  Serious: Yes (Hospitalization)
  Sender: FDA-Public Use
  Company Number: None

PATIENT
  Age: 81 Year
  Sex: Male
  Weight: 91 kg

DRUGS (2)
  1. INSULIN [Suspect]
     Indication: DIABETES MELLITUS
     Dosage: 28 UNITS BID SQ
     Route: 058
     Dates: start: 20060530, end: 20090210
  2. INSULIN [Suspect]
     Dosage: 30 UNITS BID SQ
     Route: 058
     Dates: start: 20070508, end: 20090210

REACTIONS (1)
  - HYPOGLYCAEMIA [None]
